FAERS Safety Report 5988606-X (Version None)
Quarter: 2008Q4

REPORT INFORMATION
  Report Type: 
  Country: None (occurrence: None)
  Receive Date: 20081208
  Receipt Date: 20081208
  Transmission Date: 20090506
  Serious: Yes (Other)
  Sender: FDA-Public Use
  Company Number: None

PATIENT
  Age: 29 Year
  Sex: Female
  Weight: 113.3993 kg

DRUGS (3)
  1. ISOSORBIDE MONONITRATE [Suspect]
     Indication: HEADACHE
     Dosage: 30MG ER 2 TIMES DAILY PO
     Route: 048
     Dates: start: 20080818, end: 20080910
  2. ISOSORBIDE MONONITRATE [Suspect]
     Indication: MIGRAINE
     Dosage: 30MG ER 2 TIMES DAILY PO
     Route: 048
     Dates: start: 20080818, end: 20080910
  3. ISOSORBIDE MONONITRATE [Suspect]
     Indication: VERTIGO
     Dosage: 30MG ER 2 TIMES DAILY PO
     Route: 048
     Dates: start: 20080818, end: 20080910

REACTIONS (6)
  - DISORIENTATION [None]
  - HEADACHE [None]
  - HYPOAESTHESIA FACIAL [None]
  - MUSCLE SPASMS [None]
  - OVERDOSE [None]
  - PRODUCT QUALITY ISSUE [None]
